FAERS Safety Report 14290348 (Version 2)
Quarter: 2017Q4

REPORT INFORMATION
  Report Type: Report from Study
  Country: US (occurrence: US)
  Receive Date: 20171215
  Receipt Date: 20171225
  Transmission Date: 20180321
  Serious: Yes (Death, Life-Threatening, Hospitalization)
  Sender: FDA-Public Use
  Company Number: US-AMGEN-USACT2017186748

PATIENT
  Age: 71 Year
  Sex: Male
  Weight: 101.6 kg

DRUGS (24)
  1. PREDNISONE. [Concomitant]
     Active Substance: PREDNISONE
     Dosage: 60 MG/M2, DAY 1-5
     Route: 048
     Dates: end: 20171016
  2. AMLODIPINE [Concomitant]
     Active Substance: AMLODIPINE BESYLATE
  3. OMEPRAZOLE. [Concomitant]
     Active Substance: OMEPRAZOLE
  4. SENNA [Concomitant]
     Active Substance: SENNA LEAF\SENNOSIDES\SENNOSIDES A AND B
  5. THIAMIN [Concomitant]
     Active Substance: THIAMINE
  6. POLYETHYLENE GLYCOL [Concomitant]
     Active Substance: POLYETHYLENE GLYCOLS
  7. VINCRISTINE [Concomitant]
     Active Substance: VINCRISTINE
     Dosage: 1.4 MG/M2, ON DAY 1
     Route: 042
     Dates: end: 20171106
  8. LEVOFLOXACIN. [Concomitant]
     Active Substance: LEVOFLOXACIN
  9. LORATADINE. [Concomitant]
     Active Substance: LORATADINE
  10. MULTIVITAMINS [Concomitant]
     Active Substance: VITAMINS
  11. ALLOPURINOL. [Concomitant]
     Active Substance: ALLOPURINOL
  12. PRAZOSIN. [Concomitant]
     Active Substance: PRAZOSIN
  13. BLINATUMOMAB [Suspect]
     Active Substance: BLINATUMOMAB
     Indication: ACUTE LYMPHOCYTIC LEUKAEMIA
     Dosage: 9 MUG, QD (DAYS 1-7) THEN 28 MCG/DAY ON DAY 8-28
     Route: 042
     Dates: start: 20170210, end: 20170802
  14. MIRTAZAPINE. [Concomitant]
     Active Substance: MIRTAZAPINE
  15. CYTARABINE. [Concomitant]
     Active Substance: CYTARABINE
     Dosage: 70 MG, UNK
     Dates: end: 20170922
  16. MERCAPTOPURINE. [Concomitant]
     Active Substance: MERCAPTOPURINE
     Dosage: 60 MG/M2, QD
     Route: 048
     Dates: end: 20170928
  17. METHOTREXATE. [Concomitant]
     Active Substance: METHOTREXATE
     Dosage: 12 MG/M2, QD
     Route: 048
     Dates: end: 20170928
  18. CYCLOBENZAPRINE. [Concomitant]
     Active Substance: CYCLOBENZAPRINE
  19. GUAIFENESIN. [Concomitant]
     Active Substance: GUAIFENESIN
  20. MOMETASONE [Concomitant]
     Active Substance: MOMETASONE
  21. ALBUTEROL. [Concomitant]
     Active Substance: ALBUTEROL
  22. FLUCONAZOLE. [Concomitant]
     Active Substance: FLUCONAZOLE
  23. SULFAMETHOXAZOLE AND TRIMETHOPRIM [Concomitant]
     Active Substance: SULFAMETHOXAZOLE\TRIMETHOPRIM
  24. TIOTROPIUM [Concomitant]
     Active Substance: TIOTROPIUM

REACTIONS (1)
  - Dyspnoea [Fatal]

NARRATIVE: CASE EVENT DATE: 20171127
